FAERS Safety Report 5578898-3 (Version None)
Quarter: 2008Q1

REPORT INFORMATION
  Report Type: 
  Country: None (occurrence: None)
  Receive Date: 20080102
  Receipt Date: 20071129
  Transmission Date: 20080703
  Serious: No
  Sender: FDA-Public Use
  Company Number: US-BAYER-200712964BWH

PATIENT
  Sex: Male

DRUGS (6)
  1. LEVITRA [Suspect]
     Indication: ERECTILE DYSFUNCTION
     Dosage: TOTAL DAILY DOSE: 20 MG  UNIT DOSE: 20 MG
     Route: 048
  2. DIGITEK [Concomitant]
     Dosage: UNIT DOSE: 0.125 MG
     Route: 048
  3. TOPROL-XL [Concomitant]
     Dosage: UNIT DOSE: 200 MG
     Route: 048
  4. LOTREL [Concomitant]
     Route: 048
  5. DIOVAN [Concomitant]
     Route: 048
  6. FUROSEMIDE [Concomitant]
     Dosage: UNIT DOSE: 20 MG
     Route: 048

REACTIONS (1)
  - BLOOD PRESSURE DECREASED [None]
